FAERS Safety Report 5837770-1 (Version None)
Quarter: 2008Q3

REPORT INFORMATION
  Report Type: 
  Country: None (occurrence: None)
  Receive Date: 20080806
  Receipt Date: 20080801
  Transmission Date: 20090109
  Serious: Yes (Death)
  Sender: FDA-Public Use
  Company Number: 163-21880-08070281

PATIENT
  Age: 74 Year
  Sex: Male

DRUGS (2)
  1. REVLIMID [Suspect]
     Indication: MULTIPLE MYELOMA
     Dosage: 25 MG, 1 IN 1 D, ORAL 15 MG, 1 IN 1 D, ORAL
     Route: 048
     Dates: start: 20060712, end: 20061201
  2. REVLIMID [Suspect]
     Indication: MULTIPLE MYELOMA
     Dosage: 25 MG, 1 IN 1 D, ORAL 15 MG, 1 IN 1 D, ORAL
     Route: 048
     Dates: start: 20061229, end: 20080501

REACTIONS (5)
  - DISEASE PROGRESSION [None]
  - DRY SKIN [None]
  - MULTIPLE MYELOMA [None]
  - PRURITUS [None]
  - RASH [None]
